FAERS Safety Report 21548824 (Version 2)
Quarter: 2022Q4

REPORT INFORMATION
  Report Type: Spontaneous
  Country: US (occurrence: US)
  Receive Date: 20221103
  Receipt Date: 20221123
  Transmission Date: 20230113
  Serious: Yes (Hospitalization)
  Sender: FDA-Public Use
  Company Number: US-BRAINTREE LABORATORIES, INC.-2022BTE00877

PATIENT
  Age: 74 Year
  Sex: Female
  Weight: 48.98 kg

DRUGS (21)
  1. SUTAB [Suspect]
     Active Substance: MAGNESIUM SULFATE\POTASSIUM CHLORIDE\SODIUM SULFATE
     Indication: Colonoscopy
     Dosage: 2 X 12 TABLETS, 1X
     Route: 048
     Dates: start: 20221017, end: 20221018
  2. UNSPECIFIED ACE INHIBITOR [Concomitant]
  3. SYNTHROID [Concomitant]
     Active Substance: LEVOTHYROXINE SODIUM
     Dosage: 112 ?G, 1X/DAY
     Route: 048
  4. ATORVASTATIN [Concomitant]
     Active Substance: ATORVASTATIN
     Dosage: 10 MG, 1X/DAY, AT BEDTIME
     Route: 048
  5. ALPHA LIPOIC ACID [Concomitant]
     Active Substance: .ALPHA.-LIPOIC ACID
     Dosage: 1 TABLETS, 2X/DAY
     Route: 048
  6. ASCORBIC ACID [Concomitant]
     Active Substance: ASCORBIC ACID
     Dosage: 1000 MG, 1X/DAY
     Route: 048
  7. ASPIRIN [Concomitant]
     Active Substance: ASPIRIN
     Dosage: 81 MG, 1X/DAY
     Route: 048
  8. BIOTIN [Concomitant]
     Active Substance: BIOTIN
     Dosage: 5 MG, 1X/DAY AT 1 PM
     Route: 048
  9. BUTTERBUR ROOT EXTRACT [Concomitant]
     Dosage: 75 MG, 2X/DAY, WITH A MEAL
     Route: 048
  10. VITAMIN D3 [Concomitant]
     Active Substance: CHOLECALCIFEROL
     Dosage: 5,000 UNITS, 1X/DAY
     Route: 048
  11. CO-ENZYME Q-10 [Concomitant]
     Dosage: 200 MG 1X/DAY IN THE MORNING, 100 MG 1X/DAY IN THE EVENING
     Route: 048
  12. CYANOCOBALAMIN (VITAMIN B-12) [Concomitant]
     Dosage: 1000 ?G, 1X/DAY
     Route: 048
  13. MAGNESIUM [Concomitant]
     Active Substance: MAGNESIUM
     Dosage: 1 TABLET, 1X/DAY
     Route: 048
  14. NORTRIPTYLINE [Concomitant]
     Active Substance: NORTRIPTYLINE
     Dosage: 20 MG, 1X/DAY, NIGHTLY
     Route: 048
  15. OMEGA-3 FATTY ACIDS-FISH OIL [Concomitant]
     Dosage: 2 G, 1X/DAY
     Route: 048
  16. ACCUPRIL [Concomitant]
     Active Substance: QUINAPRIL HYDROCHLORIDE
     Dosage: 20 MG, 1X/DAY NIGHTLY
     Route: 048
  17. RESTASIS [Concomitant]
     Active Substance: CYCLOSPORINE
     Dosage: 1 DROP INTO BOTH EYES EVERY 12 HOURS
     Route: 047
  18. RIBOFLAVIN [Concomitant]
     Active Substance: RIBOFLAVIN
     Dosage: 200 MG, 2X/DAY
  19. SACCHAROMYCES CEREVISIAE [Concomitant]
     Active Substance: SACCHAROMYCES CEREVISIAE
     Dosage: 250 MG, 2X/DAY
     Route: 048
  20. TAMOXIFEN [Concomitant]
     Active Substance: TAMOXIFEN
     Dosage: 10 MG EVERY OTHER DAY
     Route: 048
  21. VERAPAMIL HCL [Concomitant]
     Active Substance: VERAPAMIL HYDROCHLORIDE
     Dosage: 200 MG, 1X/DAY
     Route: 048

REACTIONS (1)
  - Stress cardiomyopathy [Recovered/Resolved]

NARRATIVE: CASE EVENT DATE: 20221018
